FAERS Safety Report 4874265-6 (Version None)
Quarter: 2006Q1

REPORT INFORMATION
  Report Type: 
  Country: None (occurrence: None)
  Receive Date: 20060106
  Receipt Date: 20051207
  Transmission Date: 20060701
  Serious: Yes (Death, Hospitalization)
  Sender: FDA-Public Use
  Company Number: US-MERCK-0512USA00934

PATIENT
  Age: 77 Year
  Sex: Female
  Weight: 48 kg

DRUGS (4)
  1. VIOXX [Suspect]
     Indication: PAIN MANAGEMENT
     Route: 048
     Dates: start: 19991103, end: 20000627
  2. CLONIDINE [Concomitant]
     Route: 065
  3. ASPIRIN [Concomitant]
     Route: 065
  4. COUMADIN [Concomitant]
     Route: 065

REACTIONS (6)
  - ASTHENIA [None]
  - BACK DISORDER [None]
  - CEREBELLAR INFARCTION [None]
  - DEEP VEIN THROMBOSIS [None]
  - METASTASES TO BONE [None]
  - RENAL CANCER METASTATIC [None]
